FAERS Safety Report 5455475-6 (Version None)
Quarter: 2007Q3

REPORT INFORMATION
  Report Type: 
  Country: None (occurrence: None)
  Receive Date: 20070918
  Receipt Date: 20070228
  Transmission Date: 20080115
  Serious: No
  Sender: FDA-Public Use
  Company Number: US-ASTRAZENECA-2006UW21040

PATIENT
  Sex: Male
  Weight: 100 kg

DRUGS (6)
  1. SEROQUEL [Suspect]
     Indication: MENTAL DISORDER
     Route: 048
     Dates: start: 20011101
  2. ABILIFY [Concomitant]
     Dates: start: 20050101
  3. HALDOL [Concomitant]
     Dates: start: 19890101
  4. NAVANE [Concomitant]
     Dates: start: 19910101
  5. RISPERDAL [Concomitant]
     Dates: start: 20010101
  6. ZYPREXA [Concomitant]
     Dates: start: 19990101, end: 20050101

REACTIONS (6)
  - ABDOMINAL PAIN [None]
  - BRONCHITIS [None]
  - CHEST PAIN [None]
  - DIABETES MELLITUS [None]
  - DIZZINESS [None]
  - VIRAL INFECTION [None]
